FAERS Safety Report 9553841 (Version 1)
Quarter: 2013Q3

REPORT INFORMATION
  Report Type: Spontaneous
  Country: US (occurrence: None)
  Receive Date: 20130916
  Receipt Date: 20130916
  Transmission Date: 20140515
  Serious: Yes (Other)
  Sender: FDA-Public Use
  Company Number: JPI-P-022901

PATIENT
  Age: 48 Year
  Sex: Female

DRUGS (10)
  1. XYREM [Suspect]
     Indication: CATAPLEXY
     Dosage: 3 GM (1.5 GM, 2 IN 1 D, ORAL
     Route: 048
     Dates: start: 20080514
  2. ALBUTEROL [Concomitant]
  3. ACETYLSALICYLIC ACID [Concomitant]
  4. FLUOXETINE [Concomitant]
  5. MODAFINIL [Concomitant]
  6. HYDROCHLOROTHIAZIDE [Concomitant]
  7. METOPROLOL [Concomitant]
  8. OMEPRAZOLE [Concomitant]
  9. SIMVASTATIN [Concomitant]
  10. FUROSEMIDE [Concomitant]

REACTIONS (11)
  - Sleep apnoea syndrome [None]
  - Weight increased [None]
  - Fall [None]
  - Narcolepsy [None]
  - Somnolence [None]
  - Condition aggravated [None]
  - Contusion [None]
  - Sleep paralysis [None]
  - Hypnopompic hallucination [None]
  - Sleep attacks [None]
  - Nocturia [None]
